FAERS Safety Report 23236458 (Version 1)
Quarter: 2023Q4

REPORT INFORMATION
  Report Type: Spontaneous
  Country: BR (occurrence: BR)
  Receive Date: 20231128
  Receipt Date: 20231128
  Transmission Date: 20240110
  Serious: Yes (Hospitalization)
  Sender: FDA-Public Use
  Company Number: BR-GLAXOSMITHKLINE-BR2023AMR162545

PATIENT

DRUGS (3)
  1. BECLOMETHASONE [Suspect]
     Active Substance: BECLOMETHASONE
     Indication: Cough
     Dosage: UNK
     Route: 055
  2. HYDROXYZINE [Suspect]
     Active Substance: HYDROXYZINE HYDROCHLORIDE
     Indication: Skin lesion
     Dosage: UNK
  3. HYDROXYZINE [Suspect]
     Active Substance: HYDROXYZINE HYDROCHLORIDE
     Indication: Pruritus

REACTIONS (5)
  - Dermatitis contact [Recovering/Resolving]
  - Pruritus [Recovering/Resolving]
  - Perioral dermatitis [Recovering/Resolving]
  - Skin lesion [Recovering/Resolving]
  - Drug ineffective [Unknown]
